FAERS Safety Report 8159420-4 (Version None)
Quarter: 2012Q1

REPORT INFORMATION
  Report Type: 
  Country: None (occurrence: None)
  Receive Date: 20120223
  Receipt Date: 20120215
  Transmission Date: 20120608
  Serious: Yes (Other)
  Sender: FDA-Public Use
  Company Number: JP-PFIZER INC-2012040134

PATIENT
  Age: 40 Year
  Sex: Male

DRUGS (3)
  1. ALPRAZOLAM [Suspect]
     Dosage: 1.2 MG/DAY
  2. ZOPICLONE [Suspect]
     Dosage: 7.5 MG/DAY
  3. PAROXETINE [Suspect]
     Dosage: 10 MG/DAY

REACTIONS (2)
  - WITHDRAWAL SYNDROME [None]
  - AUTONOMIC NERVOUS SYSTEM IMBALANCE [None]
